FAERS Safety Report 8013254-X (Version None)
Quarter: 2011Q4

REPORT INFORMATION
  Report Type: 
  Country: None (occurrence: None)
  Receive Date: 20111229
  Receipt Date: 20111229
  Transmission Date: 20120403
  Serious: Yes (Death, Life-Threatening, Hospitalization, Disabling, Congenital Anomaly, Other)
  Sender: FDA-Public Use
  Company Number: None

PATIENT
  Age: 9 Year
  Sex: Female
  Weight: 32.658 kg

DRUGS (4)
  1. FLOVENT [Suspect]
  2. AZITHROMYCIN [Concomitant]
  3. ALBUTEROL [Interacting]
     Route: 045
  4. PREDNISOLONE LIQUID [Concomitant]
     Route: 048

REACTIONS (18)
  - ABASIA [None]
  - COUGH [None]
  - PARAESTHESIA [None]
  - CRYING [None]
  - SOMNOLENCE [None]
  - VIITH NERVE PARALYSIS [None]
  - LETHARGY [None]
  - HYPOAESTHESIA [None]
  - PNEUMONIA [None]
  - MIGRAINE [None]
  - CHEST PAIN [None]
  - MONOPLEGIA [None]
  - PANIC REACTION [None]
  - PALLOR [None]
  - OCULOFACIAL PARALYSIS [None]
  - DISORIENTATION [None]
  - MUSCULOSKELETAL STIFFNESS [None]
  - RETCHING [None]
